FAERS Safety Report 17628968 (Version 3)
Quarter: 2020Q2

REPORT INFORMATION
  Report Type: Spontaneous
  Country: US (occurrence: US)
  Receive Date: 20200406
  Receipt Date: 20200622
  Transmission Date: 20200713
  Serious: No
  Sender: FDA-Public Use
  Company Number: US-GLAXOSMITHKLINE-US2020AMR057933

PATIENT
  Sex: Female

DRUGS (2)
  1. ZEJULA [Suspect]
     Active Substance: NIRAPARIB
     Indication: FALLOPIAN TUBE CANCER
     Dosage: 100 MG, QD (QPM)
     Dates: start: 20200128
  2. ZEJULA [Suspect]
     Active Substance: NIRAPARIB
     Dosage: 200 MG, QD

REACTIONS (11)
  - Chills [Recovering/Resolving]
  - Fatigue [Unknown]
  - Off label use [Unknown]
  - Headache [Recovering/Resolving]
  - Hypertension [Unknown]
  - Liver function test increased [Unknown]
  - Arthralgia [Unknown]
  - Hypertrichosis [Unknown]
  - Alopecia [Unknown]
  - Hot flush [Unknown]
  - Onychoclasis [Unknown]
